FAERS Safety Report 5763818-9 (Version None)
Quarter: 2008Q2

REPORT INFORMATION
  Report Type: 
  Country: None (occurrence: None)
  Receive Date: 20080606
  Receipt Date: 20080606
  Transmission Date: 20081010
  Serious: Yes (Life-Threatening, Other)
  Sender: FDA-Public Use
  Company Number: None

PATIENT
  Age: 70 Year
  Sex: Female
  Weight: 79.3795 kg

DRUGS (1)
  1. DIGITEK ACTAVIS FOR MYLAN [Suspect]
     Indication: HEART RATE IRREGULAR
     Dosage: .0125 WAS DOUBLED IN ERROR
     Dates: start: 20070301, end: 20080416

REACTIONS (7)
  - ASTHENIA [None]
  - CONFUSIONAL STATE [None]
  - FATIGUE [None]
  - HEART RATE IRREGULAR [None]
  - NAUSEA [None]
  - VISUAL DISTURBANCE [None]
  - VOMITING [None]
